FAERS Safety Report 6387640-8 (Version None)
Quarter: 2009Q3

REPORT INFORMATION
  Report Type: 
  Country: None (occurrence: None)
  Receive Date: 20090930
  Receipt Date: 20090917
  Transmission Date: 20100115
  Serious: Yes (Other)
  Sender: FDA-Public Use
  Company Number: 8052311

PATIENT
  Sex: Male

DRUGS (3)
  1. KEPPRA [Suspect]
     Dosage: 1500 MG 2/D TRP
     Route: 064
  2. KEPPRA [Suspect]
     Dosage: 1500 MG 2/D TRM
     Route: 062
     Dates: start: 20060815
  3. KLONOPIN [Concomitant]

REACTIONS (4)
  - DEVELOPMENTAL DELAY [None]
  - DRUG EXPOSURE VIA BREAST MILK [None]
  - MATERNAL DRUGS AFFECTING FOETUS [None]
  - SPEECH DISORDER DEVELOPMENTAL [None]
